FAERS Safety Report 24255478 (Version 1)
Quarter: 2024Q3

REPORT INFORMATION
  Report Type: Spontaneous
  Country: US (occurrence: US)
  Receive Date: 20240827
  Receipt Date: 20240827
  Transmission Date: 20241017
  Serious: No
  Sender: SANOFI AVENTIS
  Company Number: US-SA-SAC20240819000422

PATIENT
  Age: 53 Year
  Sex: Female

DRUGS (1)
  1. DUPIXENT [Suspect]
     Active Substance: DUPILUMAB
     Indication: Dermatitis atopic
     Dosage: 300 MG, QOW
     Route: 058
     Dates: start: 202402

REACTIONS (13)
  - Headache [Unknown]
  - Eye discharge [Unknown]
  - Asthenia [Unknown]
  - Pain [Unknown]
  - Amenorrhoea [Unknown]
  - Increased tendency to bruise [Unknown]
  - Vision blurred [Unknown]
  - Ocular hyperaemia [Unknown]
  - Eye swelling [Unknown]
  - Eye pruritus [Unknown]
  - Conjunctivitis [Unknown]
  - Rash [Unknown]
  - Arthralgia [Unknown]

NARRATIVE: CASE EVENT DATE: 20240101
